FAERS Safety Report 23684143 (Version 3)
Quarter: 2024Q2

REPORT INFORMATION
  Report Type: Spontaneous
  Country: FI (occurrence: FI)
  Receive Date: 20240328
  Receipt Date: 20240605
  Transmission Date: 20240716
  Serious: Yes (Hospitalization, Other)
  Sender: FDA-Public Use
  Company Number: FR-AGUETTANT-2024000262

PATIENT
  Sex: Female

DRUGS (22)
  1. EPINEPHRINE [Suspect]
     Active Substance: EPINEPHRINE
     Indication: Anaphylactic reaction
     Dosage: UNK
     Route: 030
  2. DISULFIRAM [Interacting]
     Active Substance: DISULFIRAM
     Indication: Alcoholism
     Dosage: 200 MILLIGRAM, BID (4 TABLETS TWICE A WEEK)
     Route: 065
  3. CEPHALEXIN [Suspect]
     Active Substance: CEPHALEXIN
     Indication: Dermatitis infected
     Dosage: UNK
     Route: 065
  4. LEVOMEPROMAZINE [Concomitant]
     Active Substance: LEVOMEPROMAZINE
     Dosage: 2 X 1
     Route: 065
  5. HALOPERIDOL [Concomitant]
     Active Substance: HALOPERIDOL
     Dosage: 3 X 2
     Route: 065
  6. INSULIN ASPART [Concomitant]
     Active Substance: INSULIN ASPART
     Dosage: 4 + 5 + 3 UNITS
     Route: 065
  7. RABEPRAZOLE [Concomitant]
     Active Substance: RABEPRAZOLE
     Dosage: ENTERIC-COATED TABLET 1 X 1
     Route: 065
  8. OLANZAPINE [Concomitant]
     Active Substance: OLANZAPINE
     Dosage: TABLET 1 X 2
     Route: 065
  9. DISULFIRAM [Concomitant]
     Active Substance: DISULFIRAM
     Dosage: 4 DOSAGE FORM, BIWEEKLY ( 4 TABLETS TWICE A WEEK)
     Route: 065
  10. MIRTAZAPINE [Concomitant]
     Active Substance: MIRTAZAPINE
     Dosage: TABLET 0.5 X 1
     Route: 065
  11. MELATONIN [Concomitant]
     Active Substance: MELATONIN
     Dosage: 5 MG TABLET 1 X 1
     Route: 065
  12. METFORMIN [Concomitant]
     Active Substance: METFORMIN HYDROCHLORIDE
     Dosage: EXTENDED-RELEASE TABLET 1 X 2
     Route: 065
  13. LINAGLIPTIN [Concomitant]
     Active Substance: LINAGLIPTIN
     Dosage: TABLET 1 X 1
     Route: 065
  14. QUETIAPINE [Concomitant]
     Active Substance: QUETIAPINE
     Dosage: TABLET 1 X 1
     Route: 065
  15. SEMAGLUTIDE [Concomitant]
     Active Substance: SEMAGLUTIDE
     Dosage: TABLET 1 X 1
     Route: 065
  16. SEMAGLUTIDE [Concomitant]
     Active Substance: SEMAGLUTIDE
     Dosage: QW (ONCE A WEEK  )
     Route: 065
  17. ACYCLOVIR [Concomitant]
     Active Substance: ACYCLOVIR
     Dosage: EMULSION OINTMENT 1 X 2
     Route: 065
  18. INSULIN GLARGINE [Concomitant]
     Active Substance: INSULIN GLARGINE
     Dosage: 15 UNITS X 1
     Route: 065
  19. CLONAZEPAM [Concomitant]
     Active Substance: CLONAZEPAM
     Dosage: TABLET 2 + 1
     Route: 065
  20. QUETIAPINE [Concomitant]
     Active Substance: QUETIAPINE
     Dosage: EXTENDED-RELEASE TABLET 1 + 2
     Route: 065
  21. BUPROPION [Concomitant]
     Active Substance: BUPROPION
     Dosage: 150 MG EXTENDED-RELEASE TABLET 1 X 1
     Route: 065
  22. CEPHALEXIN [Concomitant]
     Active Substance: CEPHALEXIN
     Indication: Dermatitis infected
     Dosage: UNK
     Route: 065

REACTIONS (9)
  - Hypoxia [Unknown]
  - Hypotension [Unknown]
  - Rash [Unknown]
  - PCO2 decreased [Unknown]
  - Alkalosis [Unknown]
  - Heart rate increased [Unknown]
  - Drug ineffective [Recovered/Resolved]
  - Drug interaction [Unknown]
  - Off label use [Unknown]
